FAERS Safety Report 5411860-X (Version None)
Quarter: 2007Q3

REPORT INFORMATION
  Report Type: 
  Country: None (occurrence: None)
  Receive Date: 20070813
  Receipt Date: 20070808
  Transmission Date: 20080115
  Serious: Yes (Life-Threatening, Hospitalization, Other)
  Sender: FDA-Public Use
  Company Number: GB-ELI_LILLY_AND_COMPANY-GB200708001898

PATIENT
  Age: 36 Year
  Sex: Male
  Weight: 85 kg

DRUGS (4)
  1. OLANZAPINE [Suspect]
     Indication: SCHIZOAFFECTIVE DISORDER
     Dosage: 10 MG, EACH EVENING
  2. VENLAFAXINE HCL [Concomitant]
     Dosage: 75 MG, EACH MORNING
  3. VENLAFAXINE HCL [Concomitant]
     Dosage: 225 MG, EACH EVENING
  4. DIAZEPAM [Concomitant]
     Dosage: 2 MG, UNK

REACTIONS (5)
  - CHYLOMICRON INCREASED [None]
  - HYPERGLYCAEMIA [None]
  - PANCREATIC PSEUDOCYST [None]
  - PANCREATITIS ACUTE [None]
  - WEIGHT INCREASED [None]
